FAERS Safety Report 20563675 (Version 1)
Quarter: 2022Q1

REPORT INFORMATION
  Report Type: Spontaneous
  Country: US (occurrence: US)
  Receive Date: 20220308
  Receipt Date: 20220308
  Transmission Date: 20220423
  Serious: No
  Sender: FDA-Public Use
  Company Number: US-JNJFOC-20220257230

PATIENT
  Age: 8 Week

DRUGS (1)
  1. STELARA [Suspect]
     Active Substance: USTEKINUMAB
     Indication: Crohn^s disease
     Route: 063

REACTIONS (3)
  - Maternal exposure during breast feeding [Unknown]
  - Nasal congestion [Unknown]
  - Body temperature increased [Unknown]
